FAERS Safety Report 7250446-1 (Version None)
Quarter: 2011Q1

REPORT INFORMATION
  Report Type: 
  Country: None (occurrence: None)
  Receive Date: 20110128
  Receipt Date: 20110117
  Transmission Date: 20110831
  Serious: Yes (Other)
  Sender: FDA-Public Use
  Company Number: US-ROCHE-755057

PATIENT
  Sex: Female

DRUGS (1)
  1. TAMIFLU [Suspect]
     Dosage: STOP DATE: 18 JAN 2011
     Route: 065
     Dates: start: 20110116

REACTIONS (4)
  - FEELING JITTERY [None]
  - CHEST PAIN [None]
  - ABNORMAL BEHAVIOUR [None]
  - CONFUSIONAL STATE [None]
